FAERS Safety Report 4906903-3 (Version None)
Quarter: 2006Q1

REPORT INFORMATION
  Report Type: 
  Country: None (occurrence: None)
  Receive Date: 20060207
  Receipt Date: 20060126
  Transmission Date: 20060701
  Serious: Yes (Death)
  Sender: FDA-Public Use
  Company Number: MEDI-0004089

PATIENT

DRUGS (2)
  1. SYNAGIS (PALIVIZUMAB) [Suspect]
     Indication: ANTIVIRAL PROPHYLAXIS
     Dosage: , 1 IN 30 D, INTRAMUSCULAR
     Route: 030
  2. DIPHTHERIA, PERTUSSIS, TETANUS, POLIOMYELITIS (DIPTHERIA, PERTUSSIS, T [Suspect]

REACTIONS (1)
  - DEATH [None]
